FAERS Safety Report 25304858 (Version 1)
Quarter: 2025Q2

REPORT INFORMATION
  Report Type: Spontaneous
  Country: DE (occurrence: DE)
  Receive Date: 20250513
  Receipt Date: 20250513
  Transmission Date: 20250716
  Serious: Yes (Death)
  Sender: ROCHE
  Company Number: DE-ROCHE-10000273796

PATIENT
  Age: 63 Year
  Sex: Female

DRUGS (1)
  1. BEVACIZUMAB [Suspect]
     Active Substance: BEVACIZUMAB
     Indication: Malignant meningioma metastatic
     Route: 065

REACTIONS (2)
  - Malignant meningioma metastatic [Fatal]
  - Off label use [Unknown]
